FAERS Safety Report 6075901-1 (Version None)
Quarter: 2009Q1

REPORT INFORMATION
  Report Type: 
  Country: None (occurrence: None)
  Receive Date: 20090212
  Receipt Date: 20090209
  Transmission Date: 20090719
  Serious: Yes (Death, Other)
  Sender: FDA-Public Use
  Company Number: US-ABBOTT-09P-163-0502432-00

PATIENT
  Sex: Male
  Weight: 116.22 kg

DRUGS (11)
  1. ZEMPLAR [Suspect]
     Indication: HYPERPARATHYROIDISM
     Dosage: 1 MCG M,WW,SUN, 2MCG T, THURS, AND SAT
     Route: 048
     Dates: end: 20081026
  2. SENSIPAR [Concomitant]
     Indication: HYPERPARATHYROIDISM
     Route: 048
     Dates: end: 20081026
  3. FERROUS SULFATE TAB [Concomitant]
     Indication: VITAMIN SUPPLEMENTATION
     Route: 048
     Dates: end: 20081026
  4. MIDODRINE [Concomitant]
     Indication: HYPOTENSION
     Route: 048
     Dates: end: 20081026
  5. ACIPHEX [Concomitant]
     Indication: REFLUX OESOPHAGITIS
     Route: 048
     Dates: start: 20081001, end: 20081026
  6. GEMFIBROZIL [Concomitant]
     Indication: HYPERTENSION
     Route: 048
  7. VYTORIN [Concomitant]
     Indication: BLOOD CHOLESTEROL INCREASED
     Route: 048
     Dates: end: 20081026
  8. RENAGEL [Concomitant]
     Indication: RENAL DISORDER
     Route: 048
     Dates: end: 20081026
  9. AVANDIA [Concomitant]
     Indication: DIABETES MELLITUS
     Route: 048
     Dates: end: 20081026
  10. METOPROLOL TARTRATE [Concomitant]
     Indication: HYPERTENSION
     Route: 048
     Dates: end: 20081026
  11. LIPITOR [Concomitant]
     Indication: BLOOD CHOLESTEROL INCREASED
     Route: 048
     Dates: end: 20081026

REACTIONS (6)
  - CARDIAC ARREST [None]
  - DIABETES MELLITUS [None]
  - HYPERLIPIDAEMIA [None]
  - MALAISE [None]
  - MYOCARDIAL INFARCTION [None]
  - RENAL FAILURE [None]
